FAERS Safety Report 9805564 (Version 1)
Quarter: 2014Q1

REPORT INFORMATION
  Report Type: Spontaneous
  Country: US (occurrence: None)
  Receive Date: 20140108
  Receipt Date: 20140108
  Transmission Date: 20141002
  Serious: No
  Sender: FDA-Public Use
  Company Number: None

PATIENT
  Age: 33 Year
  Sex: Female

DRUGS (3)
  1. HYDROMORPHONE [Suspect]
     Indication: CHOLECYSTITIS ACUTE
     Route: 042
     Dates: start: 20131224
  2. PERCOCET [Concomitant]
  3. VALIUM [Concomitant]

REACTIONS (2)
  - Respiratory depression [None]
  - Inadequate analgesia [None]
